FAERS Safety Report 10993355 (Version 1)
Quarter: 2015Q2

REPORT INFORMATION
  Report Type: Spontaneous
  Country: US (occurrence: None)
  Receive Date: 20150406
  Receipt Date: 20150406
  Transmission Date: 20150821
  Serious: Yes (Hospitalization)
  Sender: FDA-Public Use
  Company Number: None

PATIENT
  Age: 54 Year
  Sex: Male
  Weight: 112.49 kg

DRUGS (2)
  1. DAUNORUBICIN [Suspect]
     Active Substance: DAUNORUBICIN
     Dates: start: 20150307
  2. CYTARABINE. [Suspect]
     Active Substance: CYTARABINE
     Dates: end: 20150312

REACTIONS (16)
  - Atrial fibrillation [None]
  - Tooth abscess [None]
  - Respiratory alkalosis [None]
  - Acute kidney injury [None]
  - Intestinal ischaemia [None]
  - Local swelling [None]
  - Febrile neutropenia [None]
  - Dysphagia [None]
  - Neck pain [None]
  - No therapeutic response [None]
  - Septic shock [None]
  - Lactic acidosis [None]
  - Dental caries [None]
  - Pneumonia aspiration [None]
  - Dyspnoea [None]
  - Liver injury [None]

NARRATIVE: CASE EVENT DATE: 20150315
